FAERS Safety Report 11785814 (Version 2)
Quarter: 2015Q4

REPORT INFORMATION
  Report Type: Spontaneous
  Country: US (occurrence: US)
  Receive Date: 20151130
  Receipt Date: 20151211
  Transmission Date: 20160305
  Serious: No
  Sender: FDA-Public Use
  Company Number: US-VERTEX PHARMACEUTICALS-2015-005389

PATIENT
  Age: 21 Year
  Sex: Male
  Weight: 95 kg

DRUGS (11)
  1. DORNASE ALFA [Concomitant]
     Active Substance: DORNASE ALFA
  2. ALBUTEROL. [Concomitant]
     Active Substance: ALBUTEROL
  3. AZITHROMYCIN [Concomitant]
     Active Substance: AZITHROMYCIN ANHYDROUS
  4. MOMETASONE [Concomitant]
     Active Substance: MOMETASONE
  5. ORKAMBI [Suspect]
     Active Substance: IVACAFTOR\LUMACAFTOR
     Indication: CYSTIC FIBROSIS
     Dosage: 400-250 MG, BID
     Route: 048
     Dates: start: 201510
  6. FORMOTEROL [Concomitant]
     Active Substance: FORMOTEROL
  7. TOBRAMYCIN. [Concomitant]
     Active Substance: TOBRAMYCIN
  8. MULTIVITAMIN [Concomitant]
     Active Substance: VITAMINS
  9. ORKAMBI [Suspect]
     Active Substance: IVACAFTOR\LUMACAFTOR
     Dosage: 200MG-125 MG, BID
     Route: 048
  10. IPRATROPIUM BROMIDE AND ALBUTEROL SULFATE [Concomitant]
     Active Substance: ALBUTEROL SULFATE\IPRATROPIUM BROMIDE
  11. CREON [Concomitant]
     Active Substance: PANCRELIPASE AMYLASE\PANCRELIPASE LIPASE\PANCRELIPASE PROTEASE

REACTIONS (2)
  - Chest pain [Recovered/Resolved]
  - Respiration abnormal [Recovered/Resolved]

NARRATIVE: CASE EVENT DATE: 20151019
